FAERS Safety Report 8853580 (Version 1)
Quarter: 2012Q4

REPORT INFORMATION
  Report Type: 
  Country: US (occurrence: US)
  Receive Date: 20121023
  Receipt Date: 20121023
  Transmission Date: 20130627
  Serious: No
  Sender: FDA-Public Use
  Company Number: US-BIOGENIDEC-2012BI046336

PATIENT
  Sex: Male

DRUGS (1)
  1. AVONEX [Suspect]
     Indication: MULTIPLE SCLEROSIS
     Route: 030
     Dates: start: 20120926

REACTIONS (5)
  - Sensation of heaviness [Unknown]
  - Burning sensation [Unknown]
  - Abasia [Unknown]
  - Feeling hot [Unknown]
  - Fatigue [Unknown]
